FAERS Safety Report 4797455-X (Version None)
Quarter: 2005Q4

REPORT INFORMATION
  Report Type: 
  Country: None (occurrence: None)
  Receive Date: 20051006
  Receipt Date: 20051006
  Transmission Date: 20060501
  Serious: Yes (Life-Threatening)
  Sender: FDA-Public Use
  Company Number: None

PATIENT
  Age: 56 Year
  Sex: Male
  Weight: 118 kg

DRUGS (10)
  1. HEPARIN [Suspect]
     Indication: PULMONARY EMBOLISM
     Dosage: IV INFUSION
     Route: 042
  2. ALPRAZOLAM [Concomitant]
  3. INSULIN [Concomitant]
  4. FUROSEMIDE [Concomitant]
  5. LANSOPRAZOLE [Concomitant]
  6. CELEXA [Concomitant]
  7. AMIODARONE [Concomitant]
  8. FENTANYL [Concomitant]
  9. MILRINONE [Concomitant]
  10. LORAZEPAM [Concomitant]

REACTIONS (1)
  - HEPARIN-INDUCED THROMBOCYTOPENIA [None]
